FAERS Safety Report 6750605-8 (Version None)
Quarter: 2010Q2

REPORT INFORMATION
  Report Type: 
  Country: None (occurrence: None)
  Receive Date: 20100527
  Receipt Date: 20100518
  Transmission Date: 20101027
  Serious: Yes (Hospitalization, Other)
  Sender: FDA-Public Use
  Company Number: GB-1181962

PATIENT
  Age: 61 Year
  Sex: Male

DRUGS (6)
  1. CIPRO [Suspect]
  2. METHADONE HCL [Suspect]
     Indication: BACK PAIN
  3. VENLAFAXINE HCL [Suspect]
     Indication: MAJOR DEPRESSION
  4. HYDROMORPHONE HCL [Concomitant]
  5. METOCLOPRAMIDE (METOCLOPRAMIDE) [Concomitant]
  6. OXYCODONE HCL [Concomitant]

REACTIONS (5)
  - ATAXIA [None]
  - DIARRHOEA [None]
  - DRUG INTERACTION [None]
  - FALL [None]
  - SEROTONIN SYNDROME [None]
